FAERS Safety Report 9005452 (Version 2)
Quarter: 2013Q4

REPORT INFORMATION
  Report Type: Spontaneous
  Country: IT (occurrence: IT)
  Receive Date: 20130109
  Receipt Date: 20131223
  Transmission Date: 20140711
  Serious: Yes (Other)
  Sender: FDA-Public Use
  Company Number: IT-MYLANLABS-2013S1000214

PATIENT
  Age: 45 Year
  Sex: Female

DRUGS (1)
  1. AZITHROMYCIN [Suspect]
     Indication: OTITIS EXTERNA
     Route: 048
     Dates: start: 20121117, end: 20121119

REACTIONS (7)
  - Aphthous stomatitis [Unknown]
  - Asthenia [Unknown]
  - Diarrhoea [Unknown]
  - Headache [Unknown]
  - Pruritus [Unknown]
  - Tachycardia [Unknown]
  - Syncope [Unknown]
